FAERS Safety Report 6812246-3 (Version None)
Quarter: 2010Q3

REPORT INFORMATION
  Report Type: 
  Country: None (occurrence: None)
  Receive Date: 20100701
  Receipt Date: 20100623
  Transmission Date: 20110219
  Serious: Yes (Other)
  Sender: FDA-Public Use
  Company Number: IT-ASTRAZENECA-2010SE29621

PATIENT
  Age: 60 Year
  Sex: Female

DRUGS (5)
  1. SYMBICORT [Suspect]
     Indication: ASTHMA
     Dosage: 160+ 4.5 UG
     Route: 055
     Dates: start: 20100608, end: 20100610
  2. PERINDOPRIL [Concomitant]
  3. LEVOTHYROXINE SODIUM [Concomitant]
  4. AERIUS [Concomitant]
  5. METFONORM [Concomitant]

REACTIONS (3)
  - ABNORMAL BEHAVIOUR [None]
  - AGITATION [None]
  - ANXIETY [None]
